FAERS Safety Report 4941184-6 (Version None)
Quarter: 2006Q1

REPORT INFORMATION
  Report Type: 
  Country: None (occurrence: None)
  Receive Date: 20060310
  Receipt Date: 20060310
  Transmission Date: 20060701
  Serious: Yes (Other)
  Sender: FDA-Public Use
  Company Number: None

PATIENT
  Sex: Male

DRUGS (1)
  1. BUPROPION 100 MG [Suspect]
     Indication: MAJOR DEPRESSION
     Dosage: 100 MG BID PO
     Route: 048
     Dates: start: 20050101

REACTIONS (4)
  - AGITATION [None]
  - DEPRESSION [None]
  - DYSPNOEA [None]
  - THERAPEUTIC RESPONSE UNEXPECTED WITH DRUG SUBSTITUTION [None]
